FAERS Safety Report 19255613 (Version 2)
Quarter: 2021Q4

REPORT INFORMATION
  Report Type: Other
  Country: GR (occurrence: GR)
  Receive Date: 20210514
  Receipt Date: 20211013
  Transmission Date: 20220303
  Serious: Yes (Death, Other)
  Sender: FDA-Public Use
  Company Number: GR-ROCHE-2827163

PATIENT

DRUGS (2)
  1. TOCILIZUMAB [Suspect]
     Active Substance: TOCILIZUMAB
     Indication: COVID-19
     Dosage: MAXIMUM 800 MG SINGLE INTRAVENOUS PULSE DOSE WAS ADMINISTERED WITH THE POTENTIAL OF AN ADDITIONAL SE
     Route: 042
  2. ANAKINRA [Suspect]
     Active Substance: ANAKINRA
     Indication: COVID-19
     Dosage: 2-4 TIMES DAILY
     Route: 042

REACTIONS (3)
  - Alanine aminotransferase increased [Fatal]
  - Neutropenia [Unknown]
  - Off label use [Unknown]
